FAERS Safety Report 12923102 (Version 1)
Quarter: 2016Q4

REPORT INFORMATION
  Report Type: Report from Study
  Country: US (occurrence: US)
  Receive Date: 20161108
  Receipt Date: 20161108
  Transmission Date: 20170207
  Serious: Yes (Other)
  Sender: FDA-Public Use
  Company Number: US-TAKEDA-2016TUS019977

PATIENT
  Sex: Female

DRUGS (2)
  1. VEDOLIZUMAB [Suspect]
     Active Substance: VEDOLIZUMAB
     Dosage: UNK
     Route: 042
  2. VEDOLIZUMAB [Suspect]
     Active Substance: VEDOLIZUMAB
     Indication: CROHN^S DISEASE
     Dosage: UNK
     Route: 042

REACTIONS (3)
  - Surgery [Unknown]
  - Infection [Unknown]
  - Drug dose omission [Unknown]
